FAERS Safety Report 5519484-0 (Version None)
Quarter: 2007Q4

REPORT INFORMATION
  Report Type: 
  Country: None (occurrence: None)
  Receive Date: 20071114
  Receipt Date: 20071030
  Transmission Date: 20080405
  Serious: Yes (Other)
  Sender: FDA-Public Use
  Company Number: 100#03#2007-04521

PATIENT
  Age: 43 Year
  Sex: Male

DRUGS (5)
  1. CARBOPLATIN [Suspect]
     Indication: LEIOMYOSARCOMA
  2. ALLOPURINOL [Suspect]
     Indication: HYPERCALCAEMIA
  3. ALLOPURINOL [Suspect]
     Indication: PROPHYLAXIS
  4. DAUNORUBICIN HCL [Suspect]
     Indication: LEIOMYOSARCOMA
  5. HYDROXYUREA (HYDROXYCARBAMIDE) (HYDROXYUREA) [Suspect]
     Indication: DRUG USE FOR UNKNOWN INDICATION

REACTIONS (5)
  - ACUTE MYELOID LEUKAEMIA [None]
  - BLOOD UREA DECREASED [None]
  - HAEMODIALYSIS [None]
  - RENAL TUBULAR DISORDER [None]
  - TUMOUR LYSIS SYNDROME [None]
